FAERS Safety Report 10021002 (Version 2)
Quarter: 2014Q2

REPORT INFORMATION
  Report Type: Spontaneous
  Country: BR (occurrence: BR)
  Receive Date: 20140319
  Receipt Date: 20140423
  Transmission Date: 20141212
  Serious: Yes (Death)
  Sender: FDA-Public Use
  Company Number: BR-ASTELLAS-2014US002710

PATIENT
  Age: 10 Month
  Sex: 0

DRUGS (3)
  1. AMBISOME [Suspect]
     Indication: FUNGAEMIA
     Route: 065
  2. FLUCONAZOLE [Suspect]
     Indication: FUNGAEMIA
     Route: 065
  3. ANTIBIOTICS [Concomitant]
     Indication: PRODUCT USED FOR UNKNOWN INDICATION
     Route: 065

REACTIONS (1)
  - Drug ineffective [Fatal]
